FAERS Safety Report 15864766 (Version 1)
Quarter: 2019Q1

REPORT INFORMATION
  Report Type: Spontaneous
  Country: FR (occurrence: FR)
  Receive Date: 20190124
  Receipt Date: 20190124
  Transmission Date: 20190417
  Serious: Yes (Hospitalization)
  Sender: FDA-Public Use
  Company Number: FR-FERRINGPH-2018FE07681

PATIENT

DRUGS (7)
  1. EXACYL [Suspect]
     Active Substance: TRANEXAMIC ACID
     Indication: SHOCK HAEMORRHAGIC
     Route: 042
  2. ISOFUNDINE [Concomitant]
     Active Substance: CALCIUM CHLORIDE\MAGNESIUM CHLORIDE\MALIC ACID\POTASSIUM CHLORIDE\SODIUM ACETATE\SODIUM CHLORIDE
     Indication: HYPOTENSION
     Dosage: UNK
     Route: 051
  3. MINIRIN [Suspect]
     Active Substance: DESMOPRESSIN ACETATE
     Indication: SHOCK HAEMORRHAGIC
     Dosage: UNK
     Route: 051
  4. CALCIUM CHLORIDE. [Suspect]
     Active Substance: CALCIUM CHLORIDE
     Indication: SHOCK HAEMORRHAGIC
     Route: 042
  5. FIBRINOGENE HUMAIN [Suspect]
     Active Substance: FIBRINOGEN HUMAN
     Indication: SHOCK HAEMORRHAGIC
     Route: 042
  6. GELOFUSINE /00870402/ [Suspect]
     Active Substance: SUCCINYLATED GELATIN
     Indication: SHOCK HAEMORRHAGIC
     Dosage: UNK
     Route: 051
  7. PROPOFOL. [Suspect]
     Active Substance: PROPOFOL
     Indication: SEDATION
     Dosage: 50 MG, UNK
     Route: 051

REACTIONS (4)
  - Anaphylactic shock [Recovered/Resolved]
  - Hypotension [Recovered/Resolved]
  - Erythema [Recovered/Resolved]
  - Product use in unapproved indication [Unknown]

NARRATIVE: CASE EVENT DATE: 20181128
